FAERS Safety Report 11879139 (Version 1)
Quarter: 2015Q4

REPORT INFORMATION
  Report Type: Spontaneous
  Country: CA (occurrence: CA)
  Receive Date: 20151230
  Receipt Date: 20151230
  Transmission Date: 20160305
  Serious: Yes (Other)
  Sender: FDA-Public Use
  Company Number: CA-MEDA-2015120082

PATIENT
  Age: 66 Year
  Sex: Male

DRUGS (22)
  1. MUSE [Suspect]
     Active Substance: ALPROSTADIL
     Indication: ERECTILE DYSFUNCTION
     Route: 066
     Dates: start: 20151130, end: 20151130
  2. LANTUS [Concomitant]
     Active Substance: INSULIN GLARGINE
  3. ESOMEPRAZOL [Concomitant]
     Active Substance: ESOMEPRAZOLE
  4. SYNTHROID [Concomitant]
     Active Substance: LEVOTHYROXINE SODIUM
  5. DIAMICRON [Concomitant]
     Active Substance: GLICLAZIDE
  6. TYLENOL [Concomitant]
     Active Substance: ACETAMINOPHEN
  7. BISOPROLOL [Concomitant]
     Active Substance: BISOPROLOL
  8. NITROGLYCERIN. [Concomitant]
     Active Substance: NITROGLYCERIN
  9. ALVESCO [Concomitant]
     Active Substance: CICLESONIDE
  10. RAMIPRIL. [Concomitant]
     Active Substance: RAMIPRIL
  11. HYDROCHLOROTHIAZID [Concomitant]
     Active Substance: HYDROCHLOROTHIAZIDE
  12. CLONIDINE. [Concomitant]
     Active Substance: CLONIDINE
  13. MUSE [Suspect]
     Active Substance: ALPROSTADIL
     Indication: ERECTILE DYSFUNCTION
     Route: 066
     Dates: start: 2015
  14. ASAPHEN [Concomitant]
     Active Substance: ASPIRIN
  15. CRESTOR [Concomitant]
     Active Substance: ROSUVASTATIN CALCIUM
  16. VALPREX [Concomitant]
  17. VENTOLIN [Concomitant]
     Active Substance: ALBUTEROL SULFATE
  18. AMLODIPINE [Concomitant]
     Active Substance: AMLODIPINE BESYLATE
  19. IMDUR [Concomitant]
     Active Substance: ISOSORBIDE MONONITRATE
  20. MELATONIN [Concomitant]
     Active Substance: MELATONIN
  21. KOMBIGLYZE XR [Concomitant]
     Active Substance: METFORMIN HYDROCHLORIDE\SAXAGLIPTIN HYDROCHLORIDE
  22. FERAX [Concomitant]

REACTIONS (4)
  - Haemorrhage [Recovered/Resolved]
  - Drug effect incomplete [Unknown]
  - Product use issue [Unknown]
  - Drug ineffective [Unknown]

NARRATIVE: CASE EVENT DATE: 2015
